FAERS Safety Report 7910293-1 (Version None)
Quarter: 2011Q4

REPORT INFORMATION
  Report Type: 
  Country: None (occurrence: None)
  Receive Date: 20111111
  Receipt Date: 20100217
  Transmission Date: 20120403
  Serious: Yes (Hospitalization, Other)
  Sender: FDA-Public Use
  Company Number: GB-ROCHE-671230

PATIENT
  Sex: Female
  Weight: 67 kg

DRUGS (15)
  1. CARBOPLATIN [Suspect]
     Dosage: DOSAGE FORM: VIAL, DOSE LEVEL: 5 AUC
     Route: 042
  2. ACETAMINOPHEN AND CODEINE PHOSPHATE [Concomitant]
     Dosage: START DATE: JUNE 2010
  3. CARBOPLATIN [Suspect]
     Indication: BREAST CANCER
     Dosage: DOSAGE FORM: VIAL, DOSE LEVEL: 6 AUC, DATE OF LAST DOSE PRIOR TO SAE: 23 DEC 2009.
     Route: 042
  4. ORAMORPH SR [Concomitant]
     Dosage: TDD: 45 M/S
  5. CETIRIZINE HCL [Concomitant]
  6. AVASTIN [Suspect]
     Indication: BREAST CANCER
     Dosage: DOSAGE FORM: VIALS, DOSE LEVEL: 15 MG/KG, DATE OF LAST DOSE PRIOR TO SAE :10 AUG 2010
     Route: 042
  7. ORAMORPH SR [Concomitant]
  8. TAMOXIFEN CITRATE [Concomitant]
  9. CYCLIZINE [Concomitant]
  10. HERCEPTIN [Suspect]
     Indication: BREAST CANCER
     Dosage: DDOSAGE FORM: VIAL, DOSE LEVEL: 6 MG/KG, DATE OF LAST DOSE PRIOR TO SAE: 10 AUG 2010
     Route: 042
  11. DOCETAXEL [Suspect]
     Indication: BREAST CANCER
     Dosage: DOSAGE FORM: VIAL, DOSE LEVEL: 75 MG/M2, DATE OF LAST DOSE PRIOR TO SAE: 23 DEC 2009
     Route: 042
  12. DOCETAXEL [Suspect]
     Dosage: DOSE LEVEL: 60 MG/M2
     Route: 042
  13. CLARITHROMYCIN [Suspect]
     Indication: PRODUCT USED FOR UNKNOWN INDICATION
     Route: 065
     Dates: start: 20091205, end: 20091210
  14. PROCHLORPERAZINE [Concomitant]
  15. IBUPROFEN [Concomitant]

REACTIONS (4)
  - INFECTION [None]
  - NEUTROPENIC SEPSIS [None]
  - DEVICE RELATED INFECTION [None]
  - DIARRHOEA [None]
